FAERS Safety Report 5077176-9 (Version None)
Quarter: 2006Q3

REPORT INFORMATION
  Report Type: 
  Country: None (occurrence: None)
  Receive Date: 20060810
  Receipt Date: 20051230
  Transmission Date: 20061208
  Serious: No
  Sender: FDA-Public Use
  Company Number: US-GLAXOSMITHKLINE-A0587312A

PATIENT
  Age: 53 Year
  Sex: Female

DRUGS (7)
  1. PAXIL [Suspect]
     Indication: DEPRESSION
     Route: 048
  2. PAXIL CR [Suspect]
     Indication: DEPRESSION
     Route: 048
     Dates: start: 20051201
  3. PAROXETINE HCL [Suspect]
     Indication: DEPRESSION
     Route: 048
  4. PREMARIN [Concomitant]
  5. AMITRIPTYLINE HCL [Concomitant]
  6. BUSPAR [Concomitant]
  7. KLONOPIN [Concomitant]

REACTIONS (15)
  - AGITATION [None]
  - ANOREXIA [None]
  - ANXIETY [None]
  - DEPRESSION [None]
  - DISABILITY [None]
  - DIZZINESS [None]
  - DRUG INEFFECTIVE [None]
  - ILL-DEFINED DISORDER [None]
  - INSOMNIA [None]
  - PANIC ATTACK [None]
  - PERFORMANCE STATUS DECREASED [None]
  - PSYCHIATRIC SYMPTOM [None]
  - THERAPEUTIC RESPONSE UNEXPECTED [None]
  - TREMOR [None]
  - WEIGHT DECREASED [None]
